FAERS Safety Report 21796199 (Version 3)
Quarter: 2023Q1

REPORT INFORMATION
  Report Type: Spontaneous
  Country: DE (occurrence: DE)
  Receive Date: 20221229
  Receipt Date: 20230203
  Transmission Date: 20230417
  Serious: Yes (Other)
  Sender: FDA-Public Use
  Company Number: DE-PFIZER INC-202201398173

PATIENT
  Age: 74 Year
  Sex: Female

DRUGS (11)
  1. METHOTREXATE SODIUM [Suspect]
     Active Substance: METHOTREXATE SODIUM
     Dosage: 2 DF, WEEKLY
  2. FASENRA [Concomitant]
     Active Substance: BENRALIZUMAB
     Dosage: 1 DF (EVERY 8 WEEKS)
  3. FOLIC ACID [Concomitant]
     Active Substance: FOLIC ACID
     Dosage: 1 DF, WEEKLY (THE DAY AFTER MTX)
  4. PREDNISOLONE [Concomitant]
     Active Substance: PREDNISOLONE
     Dosage: 6 DF, 1X/DAY (TO BE REDUCED OVER THE TIME)
  5. ELIQUIS [Concomitant]
     Active Substance: APIXABAN
     Indication: Prophylaxis
     Dosage: 1 DF, 2X/DAY
  6. CHOLECALCIFEROL [Concomitant]
     Active Substance: CHOLECALCIFEROL
     Dosage: 1 DF, EVERY TWO WEEKS
  7. CANDESARTAN [Concomitant]
     Active Substance: CANDESARTAN
     Dosage: 1 DF, 1X/DAY
  8. CANDESARTAN [Concomitant]
     Active Substance: CANDESARTAN
     Dosage: 1 DF, 1X/DAY
  9. ALVESCO [Concomitant]
     Active Substance: CICLESONIDE
     Dosage: 1 DF, 1X/DAY (SPRAY)
  10. OLODATEROL HYDROCHLORIDE\TIOTROPIUM BROMIDE MONOHYDRATE [Concomitant]
     Active Substance: OLODATEROL HYDROCHLORIDE\TIOTROPIUM BROMIDE MONOHYDRATE
     Dosage: 1 DF, 1X/DAY
     Route: 055
  11. FENOTEROL HYDROBROMIDE [Concomitant]
     Active Substance: FENOTEROL HYDROBROMIDE
     Dosage: UNK, AS NEEDED (SPRAY)

REACTIONS (3)
  - Hysterectomy [Unknown]
  - Dental operation [Unknown]
  - Infection [Unknown]

NARRATIVE: CASE EVENT DATE: 20230102
